FAERS Safety Report 17545799 (Version 1)
Quarter: 2020Q1

REPORT INFORMATION
  Report Type: Report from Study
  Country: ES (occurrence: ES)
  Receive Date: 20200316
  Receipt Date: 20200316
  Transmission Date: 20200409
  Serious: Yes (Other)
  Sender: FDA-Public Use
  Company Number: ES-MYLANLABS-2020M1026554

PATIENT
  Age: 49 Year
  Sex: Male

DRUGS (9)
  1. TELMISARTAN. [Suspect]
     Active Substance: TELMISARTAN
     Indication: HYPERTENSION
     Dosage: 20 MG, QD
     Route: 048
     Dates: start: 20190109
  2. TOLVAPTAN [Suspect]
     Active Substance: TOLVAPTAN
     Indication: CONGENITAL CYSTIC KIDNEY DISEASE
     Dosage: 45 MILLIGRAM, QD(45 MG, QD)
     Route: 048
     Dates: start: 20181101, end: 20181107
  3. TOLVAPTAN [Suspect]
     Active Substance: TOLVAPTAN
     Dosage: 15 MILLIGRAM, QD(15 MG, QD )
     Route: 048
     Dates: start: 20181101, end: 20181107
  4. TOLVAPTAN [Suspect]
     Active Substance: TOLVAPTAN
     Dosage: 30 MILLIGRAM, QD(30 MG, QD  )
     Route: 048
     Dates: start: 20181108, end: 20181115
  5. TOLVAPTAN [Suspect]
     Active Substance: TOLVAPTAN
     Dosage: 30 MILLIGRAM, QD(30 MG, QD)
     Route: 048
     Dates: start: 20181116, end: 20190213
  6. TOLVAPTAN [Suspect]
     Active Substance: TOLVAPTAN
     Dosage: 90 MILLIGRAM, QD(90 MG, QD )
     Route: 048
     Dates: start: 20181116, end: 20190213
  7. VITAMINA D [Concomitant]
     Indication: VITAMIN D DEFICIENCY
     Dosage: 0.27 MILLIGRAM, MONTHLY (0.266 MG, QM)
     Route: 048
     Dates: start: 20181002
  8. TOLVAPTAN [Suspect]
     Active Substance: TOLVAPTAN
     Dosage: 60 MILLIGRAM, QD(60 MG, QD )
     Route: 048
     Dates: start: 20181108, end: 20181115
  9. HIDROFEROL [Suspect]
     Active Substance: CALCIFEDIOL
     Indication: PRODUCT USED FOR UNKNOWN INDICATION
     Dosage: UNK
     Route: 065

REACTIONS (1)
  - Hepatitis acute [Recovered/Resolved]

NARRATIVE: CASE EVENT DATE: 20190213
